FAERS Safety Report 13132265 (Version 1)
Quarter: 2017Q1

REPORT INFORMATION
  Report Type: Spontaneous
  Country: US (occurrence: US)
  Receive Date: 20170120
  Receipt Date: 20170120
  Transmission Date: 20170428
  Serious: No
  Sender: FDA-Public Use
  Company Number: US-TEVA-727810ACC

PATIENT
  Age: 48 Year
  Sex: Female

DRUGS (16)
  1. CHLORTHALIDONE. [Concomitant]
     Active Substance: CHLORTHALIDONE
     Dates: start: 20120925
  2. AMANTADINE [Concomitant]
     Active Substance: AMANTADINE
     Dates: start: 20120925
  3. LISINOPRIL. [Concomitant]
     Active Substance: LISINOPRIL
     Dates: start: 20161010
  4. VALACICLOVIR [Concomitant]
     Active Substance: VALACYCLOVIR HYDROCHLORIDE
     Dates: start: 20120925
  5. BACLOFEN. [Concomitant]
     Active Substance: BACLOFEN
     Dates: start: 20120925
  6. ACYCLOVIR. [Concomitant]
     Active Substance: ACYCLOVIR
     Dates: start: 20120925
  7. CLOPIDOGREL [Concomitant]
     Active Substance: CLOPIDOGREL BISULFATE
     Dates: start: 20161010
  8. NITROGLYCERIN. [Concomitant]
     Active Substance: NITROGLYCERIN
     Dosage: 0.1 MG/HR
     Dates: start: 20161010
  9. COPAXONE [Suspect]
     Active Substance: GLATIRAMER ACETATE
     Indication: MULTIPLE SCLEROSIS
     Route: 058
  10. PRILOSEC [Concomitant]
     Active Substance: OMEPRAZOLE MAGNESIUM
     Dates: start: 20120925
  11. CARVEDILOL. [Concomitant]
     Active Substance: CARVEDILOL
     Dates: start: 20161025
  12. VITAMIN D [Concomitant]
     Active Substance: CHOLECALCIFEROL
     Dates: start: 20120925
  13. ASPIRIN. [Concomitant]
     Active Substance: ASPIRIN
     Dates: start: 20161010
  14. OXYBUTYNIN [Concomitant]
     Active Substance: OXYBUTYNIN
     Dates: start: 20120925
  15. LATANOPROST. [Concomitant]
     Active Substance: LATANOPROST
     Dates: start: 20120925
  16. ATORVASTATIN [Concomitant]
     Active Substance: ATORVASTATIN
     Dates: start: 20161010

REACTIONS (1)
  - Injection site pain [Not Recovered/Not Resolved]

NARRATIVE: CASE EVENT DATE: 201612
